FAERS Safety Report 6097560-4 (Version None)
Quarter: 2009Q1

REPORT INFORMATION
  Report Type: 
  Country: None (occurrence: None)
  Receive Date: 20090227
  Receipt Date: 20081112
  Transmission Date: 20090719
  Serious: No
  Sender: FDA-Public Use
  Company Number: A0755976A

PATIENT
  Age: 36 Year
  Sex: Female

DRUGS (4)
  1. IMITREX [Suspect]
     Indication: MIGRAINE
     Route: 058
     Dates: start: 19940101
  2. IMITREX [Suspect]
     Dosage: 25MG AS REQUIRED
     Route: 048
     Dates: start: 20040101
  3. SUDAFED 12 HOUR [Concomitant]
  4. IBUPROFEN [Concomitant]

REACTIONS (4)
  - DRUG ADMINISTRATION ERROR [None]
  - DRUG INEFFECTIVE [None]
  - MIGRAINE [None]
  - PALPITATIONS [None]
